FAERS Safety Report 7598449-1 (Version None)
Quarter: 2011Q3

REPORT INFORMATION
  Report Type: 
  Country: None (occurrence: None)
  Receive Date: 20110708
  Receipt Date: 20110707
  Transmission Date: 20111222
  Serious: Yes (Hospitalization)
  Sender: FDA-Public Use
  Company Number: SE-MERCK-1107SWE00001

PATIENT
  Age: 77 Year
  Sex: Female

DRUGS (3)
  1. TIMOLOL MALEATE [Concomitant]
     Route: 047
  2. CYANOCOBALAMIN [Concomitant]
     Route: 048
  3. FOSAMAX [Suspect]
     Indication: OSTEOPOROSIS
     Route: 048

REACTIONS (1)
  - PATHOLOGICAL FRACTURE [None]
